FAERS Safety Report 6768893-0 (Version None)
Quarter: 2010Q2

REPORT INFORMATION
  Report Type: 
  Country: None (occurrence: None)
  Receive Date: 20100603
  Receipt Date: 20100527
  Transmission Date: 20101027
  Serious: Yes (Hospitalization, Other)
  Sender: FDA-Public Use
  Company Number: 2005-136056-NL

PATIENT
  Age: 36 Year
  Sex: Female
  Weight: 72.6 kg

DRUGS (8)
  1. NUVARING [Suspect]
     Indication: ENDOMETRIOSIS
     Dosage: ; VAG
     Route: 067
     Dates: start: 20040901, end: 20051118
  2. NUVARING [Suspect]
  3. ADVAIR DISKUS 100/50 [Concomitant]
  4. ALBUTEROL [Concomitant]
  5. PROMETHAZINE [Concomitant]
  6. HYDROCODONE BITARTRATE AND ACETAMINOPHEN [Concomitant]
  7. ZYRTEC [Concomitant]
  8. LORTAB [Concomitant]

REACTIONS (24)
  - ASTHMA [None]
  - BACTERIAL TEST POSITIVE [None]
  - CHONDROSARCOMA [None]
  - DYSGEUSIA [None]
  - EMOTIONAL DISORDER [None]
  - FIBROUS DYSPLASIA OF BONE [None]
  - HAEMATOMA [None]
  - HAEMOPTYSIS [None]
  - INTERNATIONAL NORMALISED RATIO INCREASED [None]
  - MENOMETRORRHAGIA [None]
  - MENSTRUATION DELAYED [None]
  - NEPHROLITHIASIS [None]
  - NEURILEMMOMA [None]
  - NEUROFIBROMA [None]
  - PNEUMONIA [None]
  - PROTHROMBIN TIME PROLONGED [None]
  - PULMONARY EMBOLISM [None]
  - SINUSITIS [None]
  - STRESS [None]
  - TACHYCARDIA [None]
  - TONSILLITIS [None]
  - UPPER RESPIRATORY TRACT INFECTION [None]
  - UTERINE CYST [None]
  - UTERINE POLYP [None]
